FAERS Safety Report 6828292-X (Version None)
Quarter: 2010Q3

REPORT INFORMATION
  Report Type: 
  Country: None (occurrence: None)
  Receive Date: 20100709
  Receipt Date: 20070202
  Transmission Date: 20110219
  Serious: No
  Sender: FDA-Public Use
  Company Number: US-PFIZER INC-2007010045

PATIENT
  Age: 44 Year
  Sex: Female
  Weight: 68.04 kg

DRUGS (7)
  1. CHANTIX [Suspect]
     Indication: SMOKING CESSATION THERAPY
     Dates: start: 20070101
  2. LEXAPRO [Suspect]
     Indication: ANXIETY
     Dates: start: 20070131
  3. WELLBUTRIN [Concomitant]
     Dates: end: 20070101
  4. LIPITOR [Concomitant]
  5. AMBIEN [Concomitant]
  6. ZELNORM [Concomitant]
  7. XANAX [Concomitant]

REACTIONS (7)
  - ABNORMAL DREAMS [None]
  - ANGER [None]
  - ANXIETY [None]
  - HEADACHE [None]
  - NERVOUSNESS [None]
  - STRESS [None]
  - WITHDRAWAL SYNDROME [None]
